FAERS Safety Report 9129932 (Version 1)
Quarter: 2013Q1

REPORT INFORMATION
  Report Type: Spontaneous
  Country: US (occurrence: US)
  Receive Date: 20130228
  Receipt Date: 20130228
  Transmission Date: 20140127
  Serious: No
  Sender: FDA-Public Use
  Company Number: US-009507513-1302USA012993

PATIENT
  Age: 26 Year
  Sex: Female
  Weight: 56.69 kg

DRUGS (2)
  1. NUVARING [Suspect]
     Indication: CONTRACEPTION
     Dosage: 3 WEEKS IN ONE WEEK RING FREE BREAK
     Route: 067
     Dates: start: 201205
  2. ALEVE [Concomitant]

REACTIONS (2)
  - Menstruation irregular [Unknown]
  - Metrorrhagia [Unknown]
